FAERS Safety Report 7470631-3 (Version None)
Quarter: 2011Q2

REPORT INFORMATION
  Report Type: 
  Country: None (occurrence: None)
  Receive Date: 20110510
  Receipt Date: 20101022
  Transmission Date: 20111010
  Serious: No
  Sender: FDA-Public Use
  Company Number: US-ALEXION-A201001349

PATIENT

DRUGS (8)
  1. EFFEXOR [Concomitant]
     Dosage: UNK
  2. REMICADE [Concomitant]
     Dosage: UNK
  3. LOPERAMIDE [Concomitant]
     Dosage: UNK
  4. PREDNISONE [Concomitant]
     Dosage: UNK
  5. SOLIRIS [Suspect]
     Indication: PAROXYSMAL NOCTURNAL HAEMOGLOBINURIA
     Dosage: 1500 MG, Q2W
     Route: 042
  6. ASACOL [Concomitant]
     Dosage: UNK
  7. WELCHOL [Concomitant]
     Dosage: UNK
  8. CANASA [Concomitant]
     Dosage: UNK

REACTIONS (7)
  - HAEMOGLOBINURIA [None]
  - PAROXYSMAL NOCTURNAL HAEMOGLOBINURIA [None]
  - PAIN [None]
  - RHINORRHOEA [None]
  - NASOPHARYNGITIS [None]
  - FATIGUE [None]
  - COUGH [None]
